FAERS Safety Report 17982275 (Version 1)
Quarter: 2020Q3

REPORT INFORMATION
  Report Type: Spontaneous
  Country: US (occurrence: US)
  Receive Date: 20200703
  Receipt Date: 20200703
  Transmission Date: 20201103
  Serious: No
  Sender: FDA-Public Use
  Company Number: None

PATIENT
  Age: 49 Year
  Sex: Male
  Weight: 112 kg

DRUGS (14)
  1. BRAFTOVI [Suspect]
     Active Substance: ENCORAFENIB
     Indication: MALIGNANT MELANOMA
     Route: 048
     Dates: start: 20200616, end: 20200702
  2. MIRTAZAPINE 15MG [Concomitant]
     Active Substance: MIRTAZAPINE
  3. METFORMIN 500MG [Concomitant]
     Active Substance: METFORMIN HYDROCHLORIDE
  4. ONDANSETRON 4MG [Concomitant]
     Active Substance: ONDANSETRON
  5. INSULIN LISPRO [Concomitant]
     Active Substance: INSULIN LISPRO
  6. KETOCONAZOLE. [Concomitant]
     Active Substance: KETOCONAZOLE
  7. LISINOPRIL. [Concomitant]
     Active Substance: LISINOPRIL
  8. ROSUVASTATIN 20MG [Concomitant]
     Active Substance: ROSUVASTATIN
  9. PROCHLOPERAZINE 5MG [Concomitant]
  10. MEKTOVI [Suspect]
     Active Substance: BINIMETINIB
     Indication: MALIGNANT MELANOMA
     Route: 048
     Dates: start: 20200616, end: 20200702
  11. LEVETERACETAM [Concomitant]
  12. ALBUTEROL. [Concomitant]
     Active Substance: ALBUTEROL
  13. CLINDAMYCIN 300 MG [Concomitant]
     Active Substance: CLINDAMYCIN PHOSPHATE
  14. HYDROCORTISONE 20 MG [Concomitant]

REACTIONS (2)
  - Diarrhoea [None]
  - Abdominal pain upper [None]

NARRATIVE: CASE EVENT DATE: 20200702
